FAERS Safety Report 19829621 (Version 4)
Quarter: 2022Q4

REPORT INFORMATION
  Report Type: Spontaneous
  Country: CA (occurrence: CA)
  Receive Date: 20210914
  Receipt Date: 20221103
  Transmission Date: 20230113
  Serious: Yes (Other)
  Sender: FDA-Public Use
  Company Number: CA-SA-SAC20210910000133

PATIENT
  Age: 9 Year
  Sex: Male

DRUGS (18)
  1. FLUDARABINE PHOSPHATE [Suspect]
     Active Substance: FLUDARABINE PHOSPHATE
     Indication: Acute myeloid leukaemia
     Dosage: 30 MG/M2, QD
  2. THYMOGLOBULIN [Suspect]
     Active Substance: LAPINE T-LYMPHOCYTE IMMUNE GLOBULIN
     Indication: Acute myeloid leukaemia
     Dosage: UNK
     Route: 042
  3. CYCLOPHOSPHAMIDE [Suspect]
     Active Substance: CYCLOPHOSPHAMIDE
     Indication: Acute myeloid leukaemia
     Dosage: UNK
  4. CYTARABINE [Suspect]
     Active Substance: CYTARABINE
     Indication: Acute myeloid leukaemia
     Dosage: 100 MG/M2
  5. CYTARABINE [Suspect]
     Active Substance: CYTARABINE
     Dosage: 2000 MG/M2, QD
     Route: 037
  6. CYTARABINE [Suspect]
     Active Substance: CYTARABINE
     Dosage: 1000 MG/M2
  7. DAUNORUBICIN [Suspect]
     Active Substance: DAUNORUBICIN
     Indication: Acute myeloid leukaemia
  8. DAUNORUBICIN [Suspect]
     Active Substance: DAUNORUBICIN
  9. ETOPOSIDE [Suspect]
     Active Substance: ETOPOSIDE
     Indication: Acute myeloid leukaemia
     Dosage: 100 MG/M2
  10. BUSULFAN [Suspect]
     Active Substance: BUSULFAN
     Indication: Acute myeloid leukaemia
     Dosage: UNK
  11. FILGRASTIM [Suspect]
     Active Substance: FILGRASTIM
     Indication: Acute myeloid leukaemia
     Dosage: UNK
  12. RYDAPT [Suspect]
     Active Substance: MIDOSTAURIN
     Indication: Acute myeloid leukaemia
     Dosage: 15 MG
     Route: 048
  13. RYDAPT [Suspect]
     Active Substance: MIDOSTAURIN
     Dosage: 30 MG/M2, QD
     Route: 048
  14. RYDAPT [Suspect]
     Active Substance: MIDOSTAURIN
     Dosage: 15 MG/M2, BID
     Route: 048
  15. SORAFENIB [Suspect]
     Active Substance: SORAFENIB
     Indication: Acute myeloid leukaemia
     Dosage: 200 MG/M2, QD
  16. DAUNORUBICIN HYDROCHLORIDE [Suspect]
     Active Substance: DAUNORUBICIN HYDROCHLORIDE
     Indication: Acute myeloid leukaemia
     Dosage: UNK
  17. NEXAVAR [Suspect]
     Active Substance: SORAFENIB
     Dosage: UNK
  18. FLUDARABINE [Suspect]
     Active Substance: FLUDARABINE PHOSPHATE
     Indication: Acute myeloid leukaemia
     Dosage: UNK

REACTIONS (7)
  - Acute myeloid leukaemia recurrent [Unknown]
  - Myelosuppression [Unknown]
  - Skin toxicity [Unknown]
  - Lymphadenopathy [Unknown]
  - Drug intolerance [Unknown]
  - Pancytopenia [Unknown]
  - Bone marrow failure [Unknown]
